FAERS Safety Report 4392055-8 (Version None)
Quarter: 2004Q3

REPORT INFORMATION
  Report Type: 
  Country: None (occurrence: None)
  Receive Date: 20040708
  Receipt Date: 20040128
  Transmission Date: 20050211
  Serious: Yes (Other)
  Sender: FDA-Public Use
  Company Number: PHHO2004CA01622

PATIENT
  Age: 53 Year

DRUGS (1)
  1. CLOZARIL [Suspect]
     Indication: SCHIZOPHRENIA
     Dosage: UNSPECIFIED
     Dates: start: 19950427

REACTIONS (2)
  - CARDIAC DISORDER [None]
  - DYSPNOEA [None]
